FAERS Safety Report 9341726 (Version 1)
Quarter: 2013Q2

REPORT INFORMATION
  Report Type: Spontaneous
  Country: US (occurrence: US)
  Receive Date: 20130611
  Receipt Date: 20130611
  Transmission Date: 20140414
  Serious: Yes (Hospitalization)
  Sender: FDA-Public Use
  Company Number: US-BAYER-2013-070167

PATIENT
  Age: 37 Year
  Sex: Female

DRUGS (4)
  1. YASMIN [Suspect]
  2. ZOLOFT [Concomitant]
  3. XANAX [Concomitant]
  4. TRAZODONE [Concomitant]

REACTIONS (2)
  - Pulmonary embolism [None]
  - Pelvic venous thrombosis [None]
